FAERS Safety Report 17137351 (Version 1)
Quarter: 2019Q4

REPORT INFORMATION
  Report Type: Spontaneous
  Country: GB (occurrence: GB)
  Receive Date: 20191210
  Receipt Date: 20191210
  Transmission Date: 20200122
  Serious: Yes (Hospitalization, Other)
  Sender: FDA-Public Use
  Company Number: GB-CELLTRION INC.-2019GB027135

PATIENT

DRUGS (6)
  1. RITUXIMAB (UNKNOWN) [Suspect]
     Active Substance: RITUXIMAB
     Indication: CEREBELLAR ATAXIA
     Dosage: SINGLE DOSE
     Route: 065
  2. RITUXIMAB (UNKNOWN) [Suspect]
     Active Substance: RITUXIMAB
     Indication: STIFF PERSON SYNDROME
  3. INFLIXIMAB (UNKNOWN) [Suspect]
     Active Substance: INFLIXIMAB
     Indication: CEREBELLAR ATAXIA
  4. PREDNISOLONE. [Suspect]
     Active Substance: PREDNISOLONE
     Indication: STIFF PERSON SYNDROME
  5. PREDNISOLONE. [Suspect]
     Active Substance: PREDNISOLONE
     Indication: CEREBELLAR ATAXIA
     Dosage: UNK
     Route: 048
  6. INFLIXIMAB (UNKNOWN) [Suspect]
     Active Substance: INFLIXIMAB
     Indication: STIFF PERSON SYNDROME
     Dosage: 2 DOSES (INFUSION)
     Route: 042

REACTIONS (6)
  - Diabetic ketoacidosis [Unknown]
  - Drug resistance [Unknown]
  - Product use in unapproved indication [Unknown]
  - Respiratory failure [Unknown]
  - Pneumonia [Unknown]
  - Sepsis [Unknown]
